FAERS Safety Report 19052321 (Version 2)
Quarter: 2021Q4

REPORT INFORMATION
  Report Type: Spontaneous
  Country: ES (occurrence: ES)
  Receive Date: 20210324
  Receipt Date: 20211214
  Transmission Date: 20220304
  Serious: Yes (Hospitalization)
  Sender: FDA-Public Use
  Company Number: ES-SUN PHARMACEUTICAL INDUSTRIES LTD-2021RR-287553

PATIENT
  Age: 54 Year
  Sex: Male

DRUGS (5)
  1. HYDROCHLOROTHIAZIDE\VALSARTAN [Interacting]
     Active Substance: HYDROCHLOROTHIAZIDE\VALSARTAN
     Indication: Hypertension
     Dosage: 1 DOSAGE FORM, QD, 1 FOR BREAKFAST
     Route: 048
     Dates: start: 20201103, end: 20210304
  2. FUROSEMIDE [Interacting]
     Active Substance: FUROSEMIDE
     Indication: Chronic kidney disease
     Dosage: 80 MILLIGRAM, QD 1-1-0
     Route: 048
     Dates: start: 20201019, end: 20210304
  3. SPIRONOLACTONE [Interacting]
     Active Substance: SPIRONOLACTONE
     Indication: Chronic kidney disease
     Dosage: 50 MILLIGRAM, QD 1/2 FOR BREAKFAST
     Route: 048
     Dates: start: 20201103, end: 20210304
  4. CARDURAN NEO 4 mg COMPRIMIDOS DE LIBERACION MODIFICADA, 28 comprimidos [Concomitant]
     Indication: Hypertension
     Dosage: UNK, 0-0-1
     Route: 048
     Dates: start: 20200325, end: 20210304
  5. CARVEDILOL [Concomitant]
     Active Substance: CARVEDILOL
     Indication: Hypertension
     Dosage: UNK, 1-0-1
     Route: 048
     Dates: start: 20201126, end: 20210304

REACTIONS (1)
  - Acute kidney injury [Recovering/Resolving]

NARRATIVE: CASE EVENT DATE: 20210304
